FAERS Safety Report 5345378-X (Version None)
Quarter: 2007Q2

REPORT INFORMATION
  Report Type: 
  Country: None (occurrence: None)
  Receive Date: 20070601
  Receipt Date: 20070521
  Transmission Date: 20071010
  Serious: Yes (Death)
  Sender: FDA-Public Use
  Company Number: 16596

PATIENT
  Age: 48 Year
  Sex: Male

DRUGS (4)
  1. CARBOPLATIN [Suspect]
     Indication: GASTRIC CANCER
     Dosage: 6 AUC PER_CYCLE
  2. CARBOPLATIN [Suspect]
     Indication: SMALL CELL CARCINOMA
     Dosage: 6 AUC PER_CYCLE
  3. ETOPOSIDE [Suspect]
     Indication: GASTRIC CANCER
     Dosage: 100 MG/M2 PER_CYCLE
  4. ETOPOSIDE [Suspect]
     Indication: SMALL CELL CARCINOMA
     Dosage: 100 MG/M2 PER_CYCLE

REACTIONS (2)
  - FEBRILE NEUTROPENIA [None]
  - SEPSIS [None]
